FAERS Safety Report 8586394 (Version 2)
Quarter: 2012Q4

REPORT INFORMATION
  Report Type: 
  Country: US (occurrence: US)
  Receive Date: 20120530
  Receipt Date: 20121224
  Transmission Date: 20130627
  Serious: Yes (Life-Threatening, Hospitalization, Other)
  Sender: FDA-Public Use
  Company Number: US-ROCHE-1071973

PATIENT
  Age: 56 Year
  Sex: Female
  Weight: 72.64 kg

DRUGS (10)
  1. ACTEMRA [Suspect]
     Indication: RHEUMATOID ARTHRITIS
     Dosage: therapy start date: 4 sep 2012, stop date: 4 sep 2012
     Route: 042
     Dates: start: 20120409, end: 20120409
  2. ACTEMRA [Suspect]
     Route: 042
  3. METHOTREXATE [Concomitant]
     Indication: RHEUMATOID ARTHRITIS
     Route: 048
     Dates: start: 20090622
  4. SYNTHROID [Concomitant]
     Route: 048
  5. PREDNISONE [Concomitant]
     Indication: RHEUMATOID ARTHRITIS
     Dosage: daily
     Route: 048
     Dates: start: 20110117
  6. SOMA [Concomitant]
     Indication: RHEUMATOID ARTHRITIS
     Dosage: as necessary
     Route: 048
  7. PRILOSEC [Concomitant]
  8. HYDROCODONE HCL [Concomitant]
     Indication: PAIN
  9. HYDROCODONE HCL [Concomitant]
     Indication: RHEUMATOID ARTHRITIS
  10. ELAVIL [Concomitant]
     Indication: RHEUMATOID ARTHRITIS
     Dosage: 50 QHS
     Route: 048

REACTIONS (2)
  - Pulmonary embolism [Recovered/Resolved]
  - Thrombophlebitis [Unknown]
